FAERS Safety Report 20768962 (Version 1)
Quarter: 2022Q2

REPORT INFORMATION
  Report Type: Spontaneous
  Country: US (occurrence: US)
  Receive Date: 20220429
  Receipt Date: 20220429
  Transmission Date: 20220721
  Serious: No
  Sender: FDA-Public Use
  Company Number: US-BAYER-2022A058522

PATIENT
  Age: 28 Year
  Sex: Female

DRUGS (1)
  1. KYLEENA [Suspect]
     Active Substance: LEVONORGESTREL
     Dosage: 17.5?G/DAY
     Route: 015
     Dates: end: 202111

REACTIONS (6)
  - Dehydroepiandrosterone increased [None]
  - Polycystic ovaries [None]
  - Hormone level abnormal [None]
  - Acne [None]
  - Hair growth abnormal [None]
  - Adverse event [None]

NARRATIVE: CASE EVENT DATE: 20200101
